FAERS Safety Report 6596851-8 (Version None)
Quarter: 2010Q1

REPORT INFORMATION
  Report Type: 
  Country: None (occurrence: None)
  Receive Date: 20100212
  Receipt Date: 20090731
  Transmission Date: 20100710
  Serious: No
  Sender: FDA-Public Use
  Company Number: 2009-00553

PATIENT
  Age: 74 Year
  Sex: Female
  Weight: 56.6996 kg

DRUGS (6)
  1. ZICAM COLD REMEDY NASAL GEL [Suspect]
     Dosage: SPORADIC, 2.5 YRS
     Dates: start: 20070701, end: 20090101
  2. ZICAM COLD REMEDY ORAL MIST [Suspect]
     Dosage: QD
  3. ELMIRON [Concomitant]
  4. PHENAZOPYRIDINE HCL TAB [Concomitant]
  5. CALCIUM WITH VITAMIN D [Concomitant]
  6. ALLERGY 'SHOTS^ [Concomitant]

REACTIONS (1)
  - ANOSMIA [None]
